FAERS Safety Report 17925354 (Version 2)
Quarter: 2024Q1

REPORT INFORMATION
  Report Type: Spontaneous
  Country: DE (occurrence: DE)
  Receive Date: 20200623
  Receipt Date: 20240320
  Transmission Date: 20240410
  Serious: Yes (Hospitalization)
  Sender: FDA-Public Use
  Company Number: DE-ADRED-05067-02

PATIENT
  Age: 73 Year
  Sex: Male

DRUGS (7)
  1. AMOXICILLIN\CLAVULANIC ACID [Suspect]
     Active Substance: AMOXICILLIN\CLAVULANIC ACID
     Indication: Product used for unknown indication
     Dosage: DOSAGE TEXT: TO 10022020
     Route: 065
     Dates: end: 20200210
  2. METRONIDAZOLE [Suspect]
     Active Substance: METRONIDAZOLE
     Indication: Product used for unknown indication
     Dosage: DOSAGE TEXT: TO 17022020
     Route: 065
     Dates: end: 20200217
  3. CANDESARTAN [Concomitant]
     Active Substance: CANDESARTAN
     Indication: Product used for unknown indication
     Dosage: 1-0-0-0
     Route: 065
  4. OMEPRAZOLE [Concomitant]
     Active Substance: OMEPRAZOLE
     Indication: Product used for unknown indication
     Dosage: , 1-0-0-0
     Route: 065
  5. TAMSULOSIN [Concomitant]
     Active Substance: TAMSULOSIN
     Indication: Product used for unknown indication
     Dosage: DOSAGE TEXT: 0.4 MG, 0-0-1-0
     Route: 065
  6. VANCOMYCIN [Suspect]
     Active Substance: VANCOMYCIN
     Indication: Product used for unknown indication
     Dosage: DOSAGE TEXT: 250 MG, TO 22022020
     Route: 065
     Dates: end: 20200222
  7. kalinor [Concomitant]
     Indication: Product used for unknown indication
     Dosage: DOSAGE TEXT: 1-1-1-0, RETARD CAPSULES
     Route: 065

REACTIONS (5)
  - Diarrhoea [Unknown]
  - Faeces discoloured [Unknown]
  - Diarrhoea [Unknown]
  - Diarrhoea [Unknown]
  - Abdominal pain [Unknown]
